FAERS Safety Report 23564113 (Version 2)
Quarter: 2024Q1

REPORT INFORMATION
  Report Type: Spontaneous
  Country: AU (occurrence: AU)
  Receive Date: 20240226
  Receipt Date: 20240308
  Transmission Date: 20240409
  Serious: Yes (Hospitalization)
  Sender: FDA-Public Use
  Company Number: AU-BAUSCH-BL-2024-003096

PATIENT
  Age: 62 Year
  Sex: Male
  Weight: 106 kg

DRUGS (3)
  1. MOVIPREP [Suspect]
     Active Substance: ASCORBIC ACID\POLYETHYLENE GLYCOL 3350\POTASSIUM CHLORIDE\SODIUM ASCORBATE\SODIUM CHLORIDE\SODIUM SU
     Indication: Bowel preparation
     Route: 048
     Dates: start: 20240211, end: 20240211
  2. EZETAST [Concomitant]
     Indication: Product used for unknown indication
     Dosage: 10/80 MG/MG
     Route: 065
     Dates: start: 20120822
  3. BISACODYL [Concomitant]
     Active Substance: BISACODYL
     Indication: Product used for unknown indication
     Route: 065

REACTIONS (6)
  - Balance disorder [Recovered/Resolved]
  - Haematochezia [Unknown]
  - Anaphylactic shock [Recovered/Resolved]
  - Gastrooesophageal reflux disease [Recovered/Resolved]
  - Diarrhoea [Unknown]
  - Vomiting [Recovered/Resolved]

NARRATIVE: CASE EVENT DATE: 20240211
